FAERS Safety Report 5632706-0 (Version None)
Quarter: 2008Q1

REPORT INFORMATION
  Report Type: 
  Country: None (occurrence: None)
  Receive Date: 20080219
  Receipt Date: 20080201
  Transmission Date: 20080703
  Serious: Yes (Hospitalization)
  Sender: FDA-Public Use
  Company Number: A-NJ2007-18339

PATIENT
  Age: 81 Year
  Sex: Male

DRUGS (1)
  1. TRACLEER [Suspect]
     Indication: PULMONARY HYPERTENSION
     Dosage: 62.5 MG, BID, ORAL
     Route: 048
     Dates: start: 20071025

REACTIONS (11)
  - DECREASED ACTIVITY [None]
  - DYSURIA [None]
  - FEELING ABNORMAL [None]
  - MALAISE [None]
  - OEDEMA PERIPHERAL [None]
  - PULMONARY EMBOLISM [None]
  - THROMBOSIS [None]
  - URINARY RETENTION [None]
  - URINE FLOW DECREASED [None]
  - URINE OUTPUT DECREASED [None]
  - WEIGHT DECREASED [None]
